FAERS Safety Report 17272012 (Version 1)
Quarter: 2020Q1

REPORT INFORMATION
  Report Type: Spontaneous
  Country: US (occurrence: US)
  Receive Date: 20191223
  Receipt Date: 20191223
  Transmission Date: 20200409
  Serious: Yes (Hospitalization, Other)
  Sender: FDA-Public Use
  Company Number: None

PATIENT
  Age: 6 Year
  Sex: Female
  Weight: 34.3 kg

DRUGS (2)
  1. HYDROCORTISONE SUSPENSION [Suspect]
     Active Substance: HYDROCORTISONE
     Indication: ADRENOGENITAL SYNDROME
     Route: 048
     Dates: start: 20131022
  2. HYDROCORTISONE SUSPENSION [Suspect]
     Active Substance: HYDROCORTISONE
     Dosage: ?          OTHER DOSE:2.5MG;?
     Route: 048

REACTIONS (1)
  - Drug level below therapeutic [None]

NARRATIVE: CASE EVENT DATE: 20190103
